FAERS Safety Report 21697065 (Version 2)
Quarter: 2022Q4

REPORT INFORMATION
  Report Type: Report from Study
  Country: MX (occurrence: MX)
  Receive Date: 20221208
  Receipt Date: 20221220
  Transmission Date: 20230113
  Serious: Yes (Other)
  Sender: FDA-Public Use
  Company Number: MX-UCBSA-2022068855

PATIENT
  Sex: Female
  Weight: 11 kg

DRUGS (5)
  1. LACOSAMIDE [Suspect]
     Active Substance: LACOSAMIDE
     Indication: Epilepsy
     Dosage: 2 MILLILITER, ONCE DAILY (QD) (FOR 1 WEEK)
     Route: 048
     Dates: start: 202210, end: 202210
  2. LACOSAMIDE [Suspect]
     Active Substance: LACOSAMIDE
     Dosage: 2 MILLILITER, 2X/DAY (BID) (FOR 1 WEEK)
     Route: 048
     Dates: start: 202210, end: 202210
  3. LACOSAMIDE [Suspect]
     Active Substance: LACOSAMIDE
     Dosage: 4 MILLILITER, ONCE DAILY (QD) (IN MORNING FOR 1 WEEK)
     Route: 048
     Dates: start: 202210, end: 202210
  4. LACOSAMIDE [Suspect]
     Active Substance: LACOSAMIDE
     Dosage: 4 MILLILITER, 2X/DAY (BID)
     Route: 048
     Dates: start: 202210, end: 202212
  5. VIMPAT [Suspect]
     Active Substance: LACOSAMIDE
     Indication: Epilepsy
     Dosage: 50 MILLIGRAM, 2X/DAY (BID) (ORAL/DISSOLVED IN WATER)
     Route: 048
     Dates: start: 20221208

REACTIONS (3)
  - Seizure [Not Recovered/Not Resolved]
  - Drug ineffective [Unknown]
  - Off label use [Unknown]

NARRATIVE: CASE EVENT DATE: 20220101
